FAERS Safety Report 9796952 (Version 2)
Quarter: 2014Q1

REPORT INFORMATION
  Report Type: Spontaneous
  Country: US (occurrence: US)
  Receive Date: 20140105
  Receipt Date: 20140122
  Transmission Date: 20141002
  Serious: No
  Sender: FDA-Public Use
  Company Number: US-009507513-1401USA000904

PATIENT
  Age: 81 Year
  Sex: Female
  Weight: 73.47 kg

DRUGS (8)
  1. OXYTROL FOR WOMEN [Suspect]
     Indication: POLLAKIURIA
     Dosage: UNK, UNKNOWN
     Route: 062
     Dates: start: 20131115, end: 20131213
  2. OXYTROL FOR WOMEN [Suspect]
     Indication: URINARY RETENTION
  3. LOSARTAN HYDROCHLOROTHIAZIDE WINTHROP LAB [Concomitant]
     Indication: HYPERTENSION
     Dosage: UNK, UNKNOWN
  4. TORSEMIDE [Concomitant]
     Indication: HYPERTENSION
     Dosage: 100 MG, UNKNOWN
  5. SYNTHROID [Concomitant]
     Indication: THYROID DISORDER
     Dosage: 150 MG, UNKNOWN
  6. ESTRADIOL [Concomitant]
     Indication: PRODUCT USED FOR UNKNOWN INDICATION
     Dosage: 1 MG, UNKNOWN
  7. MULTI-VITAMIN [Concomitant]
     Indication: PRODUCT USED FOR UNKNOWN INDICATION
     Dosage: UNK, UNKNOWN
  8. CITRACAL [Concomitant]
     Indication: PRODUCT USED FOR UNKNOWN INDICATION
     Dosage: UNK, UNKNOWN

REACTIONS (5)
  - Application site rash [Recovering/Resolving]
  - Application site erythema [Not Recovered/Not Resolved]
  - Application site pruritus [Not Recovered/Not Resolved]
  - Therapeutic response unexpected [Unknown]
  - Off label use [Unknown]
